FAERS Safety Report 8419513-0 (Version None)
Quarter: 2012Q2

REPORT INFORMATION
  Report Type: 
  Country: None (occurrence: None)
  Receive Date: 20120607
  Receipt Date: 20110802
  Transmission Date: 20120825
  Serious: Yes (Other)
  Sender: FDA-Public Use
  Company Number: US-BRISTOL-MYERS SQUIBB COMPANY-15882327

PATIENT
  Age: 64 Year
  Sex: Male
  Weight: 68 kg

DRUGS (8)
  1. LASIX [Concomitant]
  2. RETROVIR [Concomitant]
  3. METOPROLOL [Concomitant]
  4. SODIUM BICARBONATE [Concomitant]
  5. BACTRIM [Concomitant]
  6. ABACAVIR [Suspect]
     Indication: HIV INFECTION
  7. LAMIVUDINE [Suspect]
     Indication: HIV INFECTION
  8. SUSTIVA [Suspect]
     Indication: HIV INFECTION
     Route: 048
     Dates: start: 20110101, end: 20110101

REACTIONS (1)
  - DRUG RESISTANCE [None]
